FAERS Safety Report 9627411 (Version 1)
Quarter: 2013Q4

REPORT INFORMATION
  Report Type: Not Available
  Country: US (occurrence: US)
  Receive Date: 20131016
  Receipt Date: 20131016
  Transmission Date: 20140711
  Serious: No
  Sender: FDA-Public Use
  Company Number: US-LUNDBECK-DKLU1087295

PATIENT
  Sex: Female

DRUGS (1)
  1. SABRIL (TABLET) [Suspect]
     Indication: GRAND MAL CONVULSION
     Route: 048
     Dates: start: 20121119

REACTIONS (2)
  - Decreased appetite [Unknown]
  - Lethargy [Unknown]
